FAERS Safety Report 11690231 (Version 2)
Quarter: 2016Q1

REPORT INFORMATION
  Report Type: Spontaneous
  Country: US (occurrence: US)
  Receive Date: 20151102
  Receipt Date: 20160106
  Transmission Date: 20160525
  Serious: No
  Sender: FDA-Public Use
  Company Number: US-009507513-1510USA010605

PATIENT
  Age: 18 Year
  Sex: Female
  Weight: 48.98 kg

DRUGS (2)
  1. NEXPLANON [Suspect]
     Active Substance: ETONOGESTREL
     Indication: CONTRACEPTION
     Dosage: 68 MG/ ONE ROD PER 3 YEARS
     Route: 059
     Dates: start: 20151012, end: 20151012
  2. NEXPLANON [Suspect]
     Active Substance: ETONOGESTREL
     Dosage: 68 MG/ ONE ROD PER 3 YEARS
     Route: 059
     Dates: start: 20151012, end: 20151110

REACTIONS (5)
  - Administration site odour [Unknown]
  - Device difficult to use [Recovered/Resolved]
  - Device deployment issue [Recovered/Resolved]
  - Product quality issue [Unknown]
  - Purulence [Unknown]

NARRATIVE: CASE EVENT DATE: 2015
